FAERS Safety Report 25963842 (Version 1)
Quarter: 2025Q4

REPORT INFORMATION
  Report Type: Spontaneous
  Country: US (occurrence: US)
  Receive Date: 20251027
  Receipt Date: 20251027
  Transmission Date: 20260118
  Serious: Yes (Hospitalization, Other)
  Sender: SANOFI AVENTIS
  Company Number: US-SA-2025SA316224

PATIENT
  Sex: Female

DRUGS (15)
  1. DUPIXENT [Suspect]
     Active Substance: DUPILUMAB
     Indication: Asthma
     Dosage: 300 MG, QOW
     Route: 058
  2. AIRSUPRA [BUDESONIDE;SALBUTAMOL] [Concomitant]
  3. AZITHROMYCIN [Concomitant]
     Active Substance: AZITHROMYCIN
  4. BUDESONIDE [Concomitant]
     Active Substance: BUDESONIDE
  5. CITALOPRAM HYDROCHLORIDE [Concomitant]
     Active Substance: CITALOPRAM HYDROCHLORIDE
  6. CLOPIDOGREL [Concomitant]
     Active Substance: CLOPIDOGREL BISULFATE
  7. DIGOXIN [Concomitant]
     Active Substance: DIGOXIN
  8. HYDRALAZINE [Concomitant]
     Active Substance: HYDRALAZINE HYDROCHLORIDE
  9. ISOSORBIDE MONONITRATE [Concomitant]
     Active Substance: ISOSORBIDE MONONITRATE
  10. MONTELUKAST [Concomitant]
     Active Substance: MONTELUKAST
  11. VITAMINS NOS [Concomitant]
     Active Substance: VITAMINS
  12. OMEPRAZOLE [Concomitant]
     Active Substance: OMEPRAZOLE
  13. ROSUVASTATIN [Concomitant]
     Active Substance: ROSUVASTATIN
  14. THEOPHYLLINE [Concomitant]
     Active Substance: THEOPHYLLINE
  15. YUPELRI [Concomitant]
     Active Substance: REVEFENACIN

REACTIONS (3)
  - Pneumonia pseudomonal [Not Recovered/Not Resolved]
  - Fatigue [Not Recovered/Not Resolved]
  - Headache [Not Recovered/Not Resolved]
